FAERS Safety Report 8576264-X (Version None)
Quarter: 2012Q3

REPORT INFORMATION
  Report Type: 
  Country: None (occurrence: None)
  Receive Date: 20120807
  Receipt Date: 20120802
  Transmission Date: 20120928
  Serious: Yes (Other)
  Sender: FDA-Public Use
  Company Number: PHHY2012JP067454

PATIENT
  Age: 28 Year
  Sex: Female

DRUGS (6)
  1. MICARDIS [Concomitant]
     Route: 048
  2. FERROUS CITRATE [Concomitant]
     Route: 048
  3. ARTIST [Concomitant]
     Route: 048
  4. AMLODIPINE [Concomitant]
     Route: 048
  5. ALDOMET [Concomitant]
     Route: 048
  6. RASILEZ [Suspect]
     Indication: NEPHRITIS
     Route: 048

REACTIONS (5)
  - PITUITARY TUMOUR BENIGN [None]
  - GALACTORRHOEA [None]
  - MENORRHAGIA [None]
  - BLOOD PROLACTIN INCREASED [None]
  - POLYMENORRHOEA [None]
